FAERS Safety Report 14331752 (Version 1)
Quarter: 2017Q4

REPORT INFORMATION
  Report Type: Spontaneous
  Country: CH (occurrence: CH)
  Receive Date: 20171228
  Receipt Date: 20171228
  Transmission Date: 20180321
  Serious: Yes (Other)
  Sender: FDA-Public Use
  Company Number: CH-ROCHE-1352089

PATIENT
  Age: 53 Year
  Sex: Female
  Weight: 78 kg

DRUGS (7)
  1. HERCEPTIN [Suspect]
     Active Substance: TRASTUZUMAB
     Dosage: MAINTENANCE THERAPY.
     Route: 042
     Dates: start: 20160421
  2. NAVELBINE [Concomitant]
     Active Substance: VINORELBINE TARTRATE
     Route: 065
     Dates: start: 20151202, end: 20160421
  3. XGEVA [Concomitant]
     Active Substance: DENOSUMAB
     Indication: BREAST CANCER METASTATIC
     Route: 065
     Dates: start: 20130710, end: 201410
  4. NAVELBINE [Concomitant]
     Active Substance: VINORELBINE TARTRATE
     Indication: BREAST CANCER METASTATIC
     Route: 065
     Dates: start: 201301, end: 201306
  5. HERCEPTIN [Suspect]
     Active Substance: TRASTUZUMAB
     Route: 042
     Dates: start: 20151202
  6. HERCEPTIN [Suspect]
     Active Substance: TRASTUZUMAB
     Indication: BREAST CANCER METASTATIC
     Route: 042
     Dates: start: 201301, end: 201306
  7. HERCEPTIN [Suspect]
     Active Substance: TRASTUZUMAB
     Route: 042
     Dates: start: 20130710, end: 201410

REACTIONS (3)
  - Impetigo [Recovered/Resolved]
  - Breast cancer metastatic [Not Recovered/Not Resolved]
  - Renal failure [Recovered/Resolved]

NARRATIVE: CASE EVENT DATE: 20130123
